FAERS Safety Report 5058371-1 (Version None)
Quarter: 2006Q2

REPORT INFORMATION
  Report Type: 
  Country: None (occurrence: None)
  Receive Date: 20060627
  Receipt Date: 20050811
  Transmission Date: 20061013
  Serious: Yes (Hospitalization)
  Sender: FDA-Public Use
  Company Number: 414247

PATIENT
  Age: 70 Year
  Sex: Female
  Weight: 49 kg

DRUGS (1)
  1. XELODA [Suspect]
     Indication: COLON CANCER
     Dosage: 1800 MG 2 PER DAY ORAL
     Route: 048
     Dates: start: 20050715, end: 20050729

REACTIONS (1)
  - DIARRHOEA [None]
